FAERS Safety Report 5988911-7 (Version None)
Quarter: 2008Q4

REPORT INFORMATION
  Report Type: 
  Country: None (occurrence: None)
  Receive Date: 20081210
  Receipt Date: 20080228
  Transmission Date: 20090506
  Serious: Yes (Other)
  Sender: FDA-Public Use
  Company Number: US-AMGEN-STX267537

PATIENT
  Sex: Female

DRUGS (1)
  1. ENBREL [Suspect]
     Indication: PSORIATIC ARTHROPATHY
     Route: 058
     Dates: start: 20030701

REACTIONS (7)
  - ANXIETY [None]
  - BACK PAIN [None]
  - DEPRESSION [None]
  - HOT FLUSH [None]
  - INSOMNIA [None]
  - PSORIASIS [None]
  - SKIN BURNING SENSATION [None]
